FAERS Safety Report 7707289-1 (Version None)
Quarter: 2011Q3

REPORT INFORMATION
  Report Type: 
  Country: None (occurrence: None)
  Receive Date: 20110824
  Receipt Date: 20110818
  Transmission Date: 20111222
  Serious: Yes (Other)
  Sender: FDA-Public Use
  Company Number: PHHY2011FR74151

PATIENT
  Age: 58 Year
  Sex: Male

DRUGS (1)
  1. METHYLERGOMETRINE MALEATE [Suspect]
     Dosage: 0.4 MG, OVER 1 MIN
     Route: 040

REACTIONS (7)
  - ARTERIOSPASM CORONARY [None]
  - BRADYCARDIA [None]
  - LOSS OF CONSCIOUSNESS [None]
  - ATRIAL FIBRILLATION [None]
  - ELECTROCARDIOGRAM ST SEGMENT ELEVATION [None]
  - CORONARY ARTERY OCCLUSION [None]
  - CHEST DISCOMFORT [None]
